FAERS Safety Report 16280649 (Version 2)
Quarter: 2020Q3

REPORT INFORMATION
  Report Type: Report from Study
  Country: None (occurrence: US)
  Receive Date: 20190507
  Receipt Date: 20200902
  Transmission Date: 20201102
  Serious: Yes (Hospitalization, Other)
  Sender: FDA-Public Use
  Company Number: US-ABBVIE-19K-163-2768818-00

PATIENT
  Sex: Female

DRUGS (1)
  1. HUMIRA [Suspect]
     Active Substance: ADALIMUMAB
     Indication: RHEUMATOID ARTHRITIS
     Dosage: CITRATE FREE
     Route: 058

REACTIONS (6)
  - Colorectal cancer [Unknown]
  - Diarrhoea [Unknown]
  - Staphylococcal infection [Not Recovered/Not Resolved]
  - Acne [Recovered/Resolved]
  - Anorectal infection [Unknown]
  - Decubitus ulcer [Not Recovered/Not Resolved]
